FAERS Safety Report 10277673 (Version 2)
Quarter: 2019Q1

REPORT INFORMATION
  Report Type: Spontaneous
  Country: FR (occurrence: FR)
  Receive Date: 20140704
  Receipt Date: 20190305
  Transmission Date: 20190417
  Serious: Yes (Hospitalization)
  Sender: FDA-Public Use
  Company Number: FR-ROCHE-CID000000003452144

PATIENT
  Age: 39 Year
  Sex: Female

DRUGS (7)
  1. VALIUM [Suspect]
     Active Substance: DIAZEPAM
     Indication: MANIA
     Route: 048
     Dates: start: 20140516, end: 20140527
  2. RISPERDAL [Suspect]
     Active Substance: RISPERIDONE
     Indication: MANIA
     Route: 048
     Dates: start: 20140505, end: 20140509
  3. RISPERDAL [Suspect]
     Active Substance: RISPERIDONE
     Route: 048
     Dates: start: 20140513, end: 20140522
  4. DEPAKOTE [Suspect]
     Active Substance: DIVALPROEX SODIUM
     Indication: MANIA
     Route: 048
     Dates: start: 20140516, end: 20140527
  5. TERALITHE [Suspect]
     Active Substance: LITHIUM CARBONATE
     Indication: MANIA
     Route: 048
     Dates: start: 20140505, end: 20140527
  6. CLOPIXOL [Suspect]
     Active Substance: ZUCLOPENTHIXOL
     Indication: MANIA
     Route: 048
     Dates: start: 20140502, end: 20140505
  7. HALDOL [Suspect]
     Active Substance: HALOPERIDOL
     Indication: MANIA
     Route: 065
     Dates: start: 20140509, end: 20140516

REACTIONS (1)
  - Drug reaction with eosinophilia and systemic symptoms [Recovering/Resolving]

NARRATIVE: CASE EVENT DATE: 20140526
